FAERS Safety Report 8406226-4 (Version None)
Quarter: 2012Q1

REPORT INFORMATION
  Report Type: 
  Country: None (occurrence: None)
  Receive Date: 20120323
  Receipt Date: 20110518
  Transmission Date: 20120608
  Serious: Yes (Hospitalization)
  Sender: FDA-Public Use
  Company Number: 163-21880-11052477

PATIENT
  Age: 72 Year
  Sex: Female

DRUGS (10)
  1. METFFORMIN HYDROCHLORIDE [Concomitant]
  2. POTASSIUM CHLORIDE [Concomitant]
  3. FAMOTIDINE [Concomitant]
  4. ATENOLOL [Concomitant]
  5. WARFARIN SODIUM [Concomitant]
  6. FUROSEMIDE [Concomitant]
  7. REVLIMID [Suspect]
     Indication: MULTIPLE MYELOMA
     Dosage: 25 MG, DAILY X 21D/28D, PO; 25 MG, DAILY X21D/28D, PO
     Route: 048
     Dates: start: 20110101
  8. REVLIMID [Suspect]
     Indication: MULTIPLE MYELOMA
     Dosage: 25 MG, DAILY X 21D/28D, PO; 25 MG, DAILY X21D/28D, PO
     Route: 048
     Dates: start: 20100601, end: 20110423
  9. PRINZIDE [Concomitant]
  10. DEXAMETHASONE [Concomitant]

REACTIONS (1)
  - PNEUMONIA [None]
